FAERS Safety Report 18700589 (Version 1)
Quarter: 2021Q1

REPORT INFORMATION
  Report Type: Report from Study
  Country: US (occurrence: US)
  Receive Date: 20210105
  Receipt Date: 20210105
  Transmission Date: 20210419
  Serious: Yes (Other)
  Sender: FDA-Public Use
  Company Number: US-PFIZER INC-2020519530

PATIENT

DRUGS (6)
  1. LEUCOVORINE [Suspect]
     Active Substance: LEUCOVORIN
     Indication: MENINGEAL DISORDER
     Dosage: 200 MG/M2
  2. LEUCOVORINE [Suspect]
     Active Substance: LEUCOVORIN
     Dosage: 12 MG/M2, EVERY THREE HOURS FOR SIX DOSES
  3. LEUCOVORINE [Suspect]
     Active Substance: LEUCOVORIN
     Dosage: 12 MG/M2, 4X/DAY
  4. METHOTREXATE SODIUM. [Suspect]
     Active Substance: METHOTREXATE SODIUM
     Indication: MENINGEAL DISORDER
     Dosage: 6000 MG/M2
     Route: 042
  5. METHOTREXATE SODIUM. [Suspect]
     Active Substance: METHOTREXATE SODIUM
     Dosage: 1200 MG/M2
     Route: 042
  6. SODIUM BICARBONATE. [Concomitant]
     Active Substance: SODIUM BICARBONATE
     Dosage: UNK

REACTIONS (2)
  - Partial seizures [Recovered/Resolved]
  - Hemiparesis [Recovered/Resolved]
